FAERS Safety Report 19084781 (Version 2)
Quarter: 2021Q2

REPORT INFORMATION
  Report Type: Spontaneous
  Country: GB (occurrence: GB)
  Receive Date: 20210401
  Receipt Date: 20210616
  Transmission Date: 20210717
  Serious: Yes (Other)
  Sender: FDA-Public Use
  Company Number: GB-VERTEX PHARMACEUTICALS-2021-005193

PATIENT
  Sex: Female

DRUGS (14)
  1. KAFTRIO [Suspect]
     Active Substance: ELEXACAFTOR\IVACAFTOR\TEZACAFTOR
     Dosage: REDUCED DOSE (1 KAFTRIO AM)
     Route: 048
     Dates: start: 20201215, end: 20210330
  2. OMEPRAZOLE. [Concomitant]
     Active Substance: OMEPRAZOLE
  3. OLANZAPINE. [Concomitant]
     Active Substance: OLANZAPINE
  4. URSODEOXYCHOLIC ACID [Concomitant]
     Active Substance: URSODIOL
  5. SALBUTAMOL [Concomitant]
     Active Substance: ALBUTEROL
  6. KALYDECO [Suspect]
     Active Substance: IVACAFTOR
     Dosage: REDUCED DOSE (1 KALYDECO PM)
     Route: 048
     Dates: start: 20201215, end: 20210330
  7. PARAVIT CF [Concomitant]
  8. DORNASE ALFA. [Concomitant]
     Active Substance: DORNASE ALFA
  9. KALYDECO [Suspect]
     Active Substance: IVACAFTOR
     Indication: CYSTIC FIBROSIS
     Dosage: (150 MILLIGRAM IVACAFTOR), IN THE EVENING
     Route: 048
     Dates: start: 20201006, end: 20201105
  10. AZITHROMYCIN ANHYDROUS. [Concomitant]
     Active Substance: AZITHROMYCIN ANHYDROUS
  11. KAFTRIO [Suspect]
     Active Substance: ELEXACAFTOR\IVACAFTOR\TEZACAFTOR
     Indication: CYSTIC FIBROSIS
     Dosage: (IVACAFTOR 75MG/TEZACAFTOR 50MG /ELEXACAFTOR 100 MG), IN THE MORNING
     Route: 048
     Dates: start: 20201006, end: 20201105
  12. FLUCLOXACILLIN [Concomitant]
     Active Substance: FLUCLOXACILLIN
  13. CREON [Concomitant]
     Active Substance: PANCRELIPASE AMYLASE\PANCRELIPASE LIPASE\PANCRELIPASE PROTEASE
  14. MIRTAZAPINE. [Concomitant]
     Active Substance: MIRTAZAPINE

REACTIONS (2)
  - Intentional self-injury [Not Recovered/Not Resolved]
  - Mental impairment [Not Recovered/Not Resolved]

NARRATIVE: CASE EVENT DATE: 202010
